FAERS Safety Report 8152759-8 (Version None)
Quarter: 2012Q1

REPORT INFORMATION
  Report Type: 
  Country: None (occurrence: None)
  Receive Date: 20120221
  Receipt Date: 20120214
  Transmission Date: 20120608
  Serious: Yes (Hospitalization)
  Sender: FDA-Public Use
  Company Number: CA-B.I. PHARMACEUTICALS,INC./RIDGEFIELD-2012-CN-00370CN

PATIENT
  Age: 74 Year
  Sex: Male
  Weight: 79.38 kg

DRUGS (9)
  1. FLOMAX [Concomitant]
     Route: 065
  2. LIPITOR [Concomitant]
     Route: 065
  3. PRADAXA [Suspect]
     Dosage: 300 MG
     Route: 048
  4. NORVASC [Concomitant]
     Route: 065
  5. METOPROLOL TARTRATE [Concomitant]
     Route: 065
  6. HYDROCHLOROTHIAZIDE [Concomitant]
     Route: 065
  7. PROSCAR [Concomitant]
     Route: 065
  8. LYRICA [Concomitant]
     Route: 065
  9. METFORMIN HCL [Concomitant]
     Route: 065

REACTIONS (1)
  - CEREBROVASCULAR ACCIDENT [None]
